FAERS Safety Report 15904363 (Version 7)
Quarter: 2019Q3

REPORT INFORMATION
  Report Type: Spontaneous
  Country: DE (occurrence: DE)
  Receive Date: 20190204
  Receipt Date: 20190822
  Transmission Date: 20191004
  Serious: Yes (Hospitalization, Other)
  Sender: FDA-Public Use
  Company Number: DE-AUROBINDO-AUR-APL-2018-034058

PATIENT

DRUGS (4)
  1. KISQALI [Suspect]
     Active Substance: RIBOCICLIB
     Indication: BREAST CANCER
     Dosage: 600 MILLIGRAM, ONCE A DAY
     Route: 048
     Dates: start: 20180602
  2. KISQALI [Suspect]
     Active Substance: RIBOCICLIB
     Indication: BREAST CANCER METASTATIC
     Dosage: 600 MILLIGRAM, ONCE A DAY
     Route: 048
     Dates: start: 20180412
  3. LETROZOLE. [Suspect]
     Active Substance: LETROZOLE
     Indication: BREAST CANCER METASTATIC
     Dosage: 2.5 MILLIGRAM, ONCE A DAY
     Route: 048
     Dates: start: 20180412, end: 20190507
  4. FENTANYL TRANSDERMAL SYSTEM [Suspect]
     Active Substance: FENTANYL
     Indication: PAIN PROPHYLAXIS
     Dosage: 37.5 MICROGRAM (37.5 UG, EVERY 3 DAYS)
     Route: 062
     Dates: start: 2018, end: 20180521

REACTIONS (15)
  - Platelet count decreased [Recovering/Resolving]
  - Herpes zoster [Recovered/Resolved]
  - Headache [Recovered/Resolved]
  - General physical health deterioration [Recovered/Resolved]
  - Nausea [Not Recovered/Not Resolved]
  - Gingival bleeding [Recovered/Resolved]
  - Sinusitis [Recovering/Resolving]
  - Lacrimation increased [Not Recovered/Not Resolved]
  - Rash [Not Recovered/Not Resolved]
  - Vomiting [Recovered/Resolved]
  - Breast pain [Recovered/Resolved]
  - Haemoptysis [Recovered/Resolved]
  - Skin haemorrhage [Recovered/Resolved]
  - Osteoarthritis [Not Recovered/Not Resolved]
  - Electrocardiogram QT prolonged [Recovered/Resolved]

NARRATIVE: CASE EVENT DATE: 20180424
